FAERS Safety Report 6360489-8 (Version None)
Quarter: 2009Q3

REPORT INFORMATION
  Report Type: 
  Country: None (occurrence: None)
  Receive Date: 20090917
  Receipt Date: 20090902
  Transmission Date: 20100115
  Serious: Yes (Other)
  Sender: FDA-Public Use
  Company Number: US-PFIZER INC-2009264035

PATIENT

DRUGS (2)
  1. XANAX [Suspect]
  2. LEXAPRO [Suspect]

REACTIONS (1)
  - ADVERSE REACTION [None]
